FAERS Safety Report 13465621 (Version 1)
Quarter: 2017Q2

REPORT INFORMATION
  Report Type: Spontaneous
  Country: US (occurrence: US)
  Receive Date: 20170420
  Receipt Date: 20170420
  Transmission Date: 20170830
  Serious: No
  Sender: FDA-Public Use
  Company Number: None

PATIENT
  Age: 34 Year
  Sex: Female

DRUGS (1)
  1. HUMIRA [Suspect]
     Active Substance: ADALIMUMAB
     Indication: PSORIATIC ARTHROPATHY
     Route: 058
     Dates: start: 20170309

REACTIONS (8)
  - Eye pruritus [None]
  - Lacrimation increased [None]
  - Headache [None]
  - Vision blurred [None]
  - Cough [None]
  - Visual field defect [None]
  - Throat irritation [None]
  - Visual impairment [None]

NARRATIVE: CASE EVENT DATE: 20170416
